FAERS Safety Report 20976992 (Version 1)
Quarter: 2022Q2

REPORT INFORMATION
  Report Type: Report from Study
  Country: BR (occurrence: BR)
  Receive Date: 20220617
  Receipt Date: 20220617
  Transmission Date: 20220720
  Serious: Yes (Other)
  Sender: FDA-Public Use
  Company Number: BR-JNJFOC-20220625030

PATIENT
  Sex: Female
  Weight: 96 kg

DRUGS (1)
  1. INFLIXIMAB [Suspect]
     Active Substance: INFLIXIMAB
     Indication: Colitis ulcerative
     Route: 041
     Dates: start: 2015, end: 2020

REACTIONS (5)
  - Colitis ulcerative [Unknown]
  - Large intestine polyp [Unknown]
  - Latent tuberculosis [Unknown]
  - Product availability issue [Unknown]
  - Intercepted product prescribing error [Unknown]
